FAERS Safety Report 6736475-2 (Version None)
Quarter: 2010Q2

REPORT INFORMATION
  Report Type: 
  Country: None (occurrence: None)
  Receive Date: 20100521
  Receipt Date: 20100505
  Transmission Date: 20101027
  Serious: Yes (Hospitalization)
  Sender: FDA-Public Use
  Company Number: US-SANOFI-AVENTIS-2010SA028051

PATIENT
  Age: 67 Year
  Sex: Male

DRUGS (4)
  1. GLYBURIDE [Suspect]
     Dates: start: 20091214, end: 20091214
  2. BEVACIZUMAB [Suspect]
     Route: 040
     Dates: start: 20091015
  3. OXYCODONE [Suspect]
     Indication: PAIN
     Dates: start: 20091214, end: 20091214
  4. DURAGESIC-100 [Suspect]
     Indication: PAIN
     Dates: start: 20091214, end: 20091214

REACTIONS (1)
  - PULMONARY EMBOLISM [None]
